FAERS Safety Report 20414402 (Version 3)
Quarter: 2022Q1

REPORT INFORMATION
  Report Type: Report from Study
  Country: US (occurrence: US)
  Receive Date: 20220202
  Receipt Date: 20220208
  Transmission Date: 20220424
  Serious: No
  Sender: FDA-Public Use
  Company Number: US-NOVARTISTESTPH-NVSC2022US021899

PATIENT
  Age: 29 Year
  Sex: Male
  Weight: 151.5 kg

DRUGS (1)
  1. ENTRESTO [Suspect]
     Active Substance: SACUBITRIL\VALSARTAN
     Indication: Product used for unknown indication
     Dosage: 100 MG/KG, BID
     Route: 048
     Dates: start: 20210312, end: 20211223

REACTIONS (4)
  - Heart rate irregular [Unknown]
  - Insomnia [Unknown]
  - Feeling abnormal [Unknown]
  - Sleep deficit [Unknown]

NARRATIVE: CASE EVENT DATE: 20220117
